FAERS Safety Report 19942628 (Version 1)
Quarter: 2021Q4

REPORT INFORMATION
  Report Type: Report from Study
  Country: EG (occurrence: EG)
  Receive Date: 20211012
  Receipt Date: 20211012
  Transmission Date: 20220304
  Serious: Yes (Other)
  Sender: FDA-Public Use
  Company Number: EG-NOVARTISPH-NVSC2021EG232116

PATIENT
  Sex: Male

DRUGS (2)
  1. OMNITROPE [Suspect]
     Active Substance: SOMATROPIN
     Indication: Growth hormone deficiency
     Dosage: UNK (START DATE:ONE YEAR AGO) (STOP DATE:TWO MONTHS AGO)
     Route: 058
  2. VITAMIN D NOS [Concomitant]
     Active Substance: VITAMIN D NOS
     Indication: Medical diet
     Dosage: 1 DF, QD (AFTER BREAKFAST
     Route: 065
     Dates: end: 202109

REACTIONS (1)
  - Weight increased [Not Recovered/Not Resolved]
